FAERS Safety Report 5799363-4 (Version None)
Quarter: 2008Q3

REPORT INFORMATION
  Report Type: 
  Country: None (occurrence: None)
  Receive Date: 20080703
  Receipt Date: 20080624
  Transmission Date: 20090109
  Serious: Yes (Other)
  Sender: FDA-Public Use
  Company Number: JP-PFIZER INC-2008053543

PATIENT
  Age: 54 Year
  Sex: Female

DRUGS (9)
  1. AZULFIDINE EN-TABS [Suspect]
     Indication: RHEUMATOID ARTHRITIS
     Route: 048
     Dates: start: 20080602, end: 20080616
  2. PREDONINE [Concomitant]
  3. ALFAROL [Concomitant]
  4. ASPARA-CA [Concomitant]
  5. LOXONIN [Concomitant]
  6. GLORIAMIN [Concomitant]
  7. ALENDRONATE SODIUM [Concomitant]
  8. RHEUMATREX [Concomitant]
  9. SELTOUCH [Concomitant]

REACTIONS (2)
  - DYSGEUSIA [None]
  - GLOSSITIS [None]
